FAERS Safety Report 4826149-7 (Version None)
Quarter: 2005Q4

REPORT INFORMATION
  Report Type: 
  Country: None (occurrence: None)
  Receive Date: 20051111
  Receipt Date: 20051109
  Transmission Date: 20060501
  Serious: Yes (Other)
  Sender: FDA-Public Use
  Company Number: US-GLAXOSMITHKLINE-A0581526A

PATIENT
  Age: 47 Year
  Sex: Female

DRUGS (2)
  1. DEBROX DROPS [Suspect]
     Indication: CERUMEN REMOVAL
     Route: 001
     Dates: start: 20051108, end: 20051108
  2. NO CONCURRENT MEDICATION [Concomitant]

REACTIONS (2)
  - DEAFNESS [None]
  - EAR DISCOMFORT [None]
